FAERS Safety Report 5642519-1 (Version None)
Quarter: 2008Q1

REPORT INFORMATION
  Report Type: 
  Country: None (occurrence: None)
  Receive Date: 20080227
  Receipt Date: 20080227
  Transmission Date: 20080703
  Serious: Yes (Hospitalization, Other)
  Sender: FDA-Public Use
  Company Number: None

PATIENT
  Age: 66 Year
  Sex: Female

DRUGS (10)
  1. FOSAMAX [Suspect]
     Indication: OSTEOPOROSIS
     Dosage: 70MG WEEKLY
     Dates: end: 20060401
  2. ANTIBIOTICS [Concomitant]
  3. NARDIL [Concomitant]
  4. PRAVACHOL [Concomitant]
  5. NEXIUM [Concomitant]
  6. RESTORIL [Concomitant]
  7. FENTANYL TRANSDERMAL SYSTEM [Concomitant]
  8. OXYCODONE HCL [Concomitant]
  9. PLAVIX [Concomitant]
  10. TRICOR [Concomitant]

REACTIONS (4)
  - OSTEOMYELITIS [None]
  - OSTEONECROSIS [None]
  - SOFT TISSUE DISORDER [None]
  - WOUND SECRETION [None]
